FAERS Safety Report 17458918 (Version 1)
Quarter: 2020Q1

REPORT INFORMATION
  Report Type: Spontaneous
  Country: US (occurrence: US)
  Receive Date: 20200212
  Receipt Date: 20200212
  Transmission Date: 20200409
  Serious: No
  Sender: FDA-Public Use
  Company Number: None

PATIENT
  Age: 83 Year
  Sex: Female
  Weight: 61.23 kg

DRUGS (1)
  1. ALPHAGAN P [Suspect]
     Active Substance: BRIMONIDINE TARTRATE
     Indication: GLAUCOMA
     Dosage: ?          OTHER STRENGTH:9;QUANTITY:1 GTT DROP(S);?
     Route: 047
     Dates: start: 20191218, end: 20191223

REACTIONS (4)
  - Instillation site swelling [None]
  - Ocular hyperaemia [None]
  - Instillation site erythema [None]
  - Instillation site irritation [None]

NARRATIVE: CASE EVENT DATE: 20191218
